FAERS Safety Report 6506116-8 (Version None)
Quarter: 2009Q4

REPORT INFORMATION
  Report Type: 
  Country: None (occurrence: None)
  Receive Date: 20091217
  Receipt Date: 20091217
  Transmission Date: 20100525
  Serious: No
  Sender: FDA-Public Use
  Company Number: None

PATIENT
  Age: 62 Year
  Sex: Female
  Weight: 58.9676 kg

DRUGS (1)
  1. COLD REMEDY NASAL GEL [Suspect]
     Dosage: ONE DOSE
     Dates: start: 20091120, end: 20091120

REACTIONS (1)
  - AGEUSIA [None]
